FAERS Safety Report 20165042 (Version 2)
Quarter: 2021Q4

REPORT INFORMATION
  Report Type: Spontaneous
  Country: BR (occurrence: BR)
  Receive Date: 20211209
  Receipt Date: 20211221
  Transmission Date: 20220303
  Serious: Yes (Hospitalization)
  Sender: FDA-Public Use
  Company Number: BR-CELGENE-BRA-20211200807

PATIENT
  Sex: Female

DRUGS (7)
  1. LENALIDOMIDE [Suspect]
     Active Substance: LENALIDOMIDE
     Indication: Product used for unknown indication
     Dosage: 25 MILLIGRAM
     Route: 048
     Dates: start: 20211101
  2. LENALIDOMIDE [Suspect]
     Active Substance: LENALIDOMIDE
     Dosage: 25 MILLIGRAM
     Route: 048
     Dates: start: 20211129
  3. IXAZOMIB [Concomitant]
     Active Substance: IXAZOMIB
     Indication: Product used for unknown indication
     Dosage: 1 TABLET PO 1X/WEEK FOR 3 WEEKS
     Route: 048
     Dates: start: 20211027
  4. IXAZOMIB [Concomitant]
     Active Substance: IXAZOMIB
     Dosage: 1 TABLET PO 1X/WEEK FOR 3 WEEKS
     Route: 048
     Dates: start: 20211103
  5. IXAZOMIB [Concomitant]
     Active Substance: IXAZOMIB
     Dosage: 1 TABLET PO 1X/WEEK FOR 3 WEEKS
     Route: 048
     Dates: start: 20211110
  6. IXAZOMIB [Concomitant]
     Active Substance: IXAZOMIB
     Dosage: 1 TABLET PO 1X/WEEK FOR 3 WEEKS
     Route: 048
     Dates: start: 20211124
  7. IXAZOMIB [Concomitant]
     Active Substance: IXAZOMIB
     Dosage: 1 TABLET PO 1X/WEEK FOR 3 WEEKS
     Route: 048
     Dates: start: 20211201

REACTIONS (1)
  - Haematotoxicity [Unknown]
